FAERS Safety Report 12199604 (Version 2)
Quarter: 2016Q1

REPORT INFORMATION
  Report Type: Spontaneous
  Country: US (occurrence: US)
  Receive Date: 20160322
  Receipt Date: 20160324
  Transmission Date: 20160526
  Serious: No
  Sender: FDA-Public Use
  Company Number: US-BAYER-2016-054867

PATIENT
  Age: 6 Year
  Sex: Female
  Weight: 18.14 kg

DRUGS (1)
  1. CHILDREN CLARITIN ALLERGY [Suspect]
     Active Substance: LORATADINE
     Dosage: UNK
     Dates: start: 20160319, end: 20160319

REACTIONS (2)
  - Product use issue [None]
  - Somnolence [None]

NARRATIVE: CASE EVENT DATE: 20160319
